FAERS Safety Report 6753174-1 (Version None)
Quarter: 2010Q2

REPORT INFORMATION
  Report Type: 
  Country: None (occurrence: None)
  Receive Date: 20100526
  Receipt Date: 20100420
  Transmission Date: 20101027
  Serious: No
  Sender: FDA-Public Use
  Company Number: 307384

PATIENT
  Age: 57 Year
  Sex: Male

DRUGS (2)
  1. VICTOZA [Suspect]
     Indication: TYPE 1 DIABETES MELLITUS
     Dosage: 1.2 MG, QD, SUBCUTANEOUS; 0.6 MG, QD, SUBCUTANEOUS
     Route: 058
     Dates: end: 20100419
  2. VICTOZA [Suspect]
     Indication: TYPE 1 DIABETES MELLITUS
     Dosage: 1.2 MG, QD, SUBCUTANEOUS; 0.6 MG, QD, SUBCUTANEOUS
     Route: 058
     Dates: start: 20100420

REACTIONS (3)
  - FATIGUE [None]
  - HEADACHE [None]
  - MALAISE [None]
